FAERS Safety Report 6389919-2 (Version None)
Quarter: 2009Q4

REPORT INFORMATION
  Report Type: 
  Country: None (occurrence: None)
  Receive Date: 20091006
  Receipt Date: 20090402
  Transmission Date: 20100525
  Serious: No
  Sender: FDA-Public Use
  Company Number: US-BRISTOL-MYERS SQUIBB COMPANY-14574370

PATIENT
  Age: 79 Year
  Sex: Female

DRUGS (2)
  1. AVALIDE [Suspect]
     Dosage: 1DF= 1/2 TABS OF 150MG/12.5MG
     Dates: start: 20040501
  2. AVAPRO [Suspect]
     Dates: start: 20040501

REACTIONS (1)
  - SKIN WRINKLING [None]
